FAERS Safety Report 11126742 (Version 1)
Quarter: 2015Q2

REPORT INFORMATION
  Report Type: Spontaneous
  Country: US (occurrence: US)
  Receive Date: 20150520
  Receipt Date: 20150520
  Transmission Date: 20150821
  Serious: Yes (Other)
  Sender: FDA-Public Use
  Company Number: US-INTERMUNE, INC.-201501IM008854

PATIENT
  Age: 82 Year
  Sex: Male

DRUGS (11)
  1. ESBRIET [Suspect]
     Active Substance: PIRFENIDONE
     Dosage: 2403 MG
     Route: 048
     Dates: start: 20141201
  2. ESBRIET [Suspect]
     Active Substance: PIRFENIDONE
     Route: 048
     Dates: end: 20150115
  3. ESBRIET [Suspect]
     Active Substance: PIRFENIDONE
     Dosage: 1602 MG
     Route: 048
  4. FLUTICASONE [Concomitant]
     Active Substance: FLUTICASONE\FLUTICASONE PROPIONATE
  5. LUMIGAN [Concomitant]
     Active Substance: BIMATOPROST
  6. FLOVENT DISKUS [Concomitant]
     Active Substance: FLUTICASONE PROPIONATE
  7. ESBRIET [Suspect]
     Active Substance: PIRFENIDONE
     Indication: IDIOPATHIC PULMONARY FIBROSIS
     Route: 048
     Dates: start: 20141113
  8. PLAVIX [Concomitant]
     Active Substance: CLOPIDOGREL BISULFATE
  9. RANEXA [Concomitant]
     Active Substance: RANOLAZINE
  10. ESBRIET [Suspect]
     Active Substance: PIRFENIDONE
     Dosage: 1068 MG
     Route: 048
  11. TIMOLOL OPHTHALMIC [Concomitant]
     Route: 047

REACTIONS (6)
  - Urinary retention [Recovered/Resolved]
  - Decreased appetite [Recovered/Resolved]
  - Laryngospasm [Recovered/Resolved]
  - Forced vital capacity decreased [Recovered/Resolved]
  - Carbon monoxide diffusing capacity decreased [Recovered/Resolved]
  - Fatigue [Recovered/Resolved]

NARRATIVE: CASE EVENT DATE: 20141204
